FAERS Safety Report 5529066-2 (Version None)
Quarter: 2007Q4

REPORT INFORMATION
  Report Type: 
  Country: None (occurrence: None)
  Receive Date: 20071129
  Receipt Date: 20061025
  Transmission Date: 20080405
  Serious: No
  Sender: FDA-Public Use
  Company Number: A0624917A

PATIENT
  Sex: Male

DRUGS (2)
  1. WELLBUTRIN [Suspect]
     Indication: DEPRESSION
     Dosage: 150MG PER DAY
     Route: 048
     Dates: start: 20061011, end: 20061018
  2. IBUPROFEN [Concomitant]

REACTIONS (1)
  - TINNITUS [None]
